FAERS Safety Report 9341548 (Version 2)
Quarter: 2013Q2

REPORT INFORMATION
  Report Type: Spontaneous
  Country: GB (occurrence: None)
  Receive Date: 20130529
  Receipt Date: 20130606
  Transmission Date: 20140414
  Serious: Yes (Other)
  Sender: FDA-Public Use
  Company Number: 2013035872

PATIENT
  Age: 27 Year
  Sex: Male

DRUGS (3)
  1. PRIVIGEN [Suspect]
     Indication: HYPER IGM SYNDROME
     Dosage: 45 G TOTAL, INITIAL RATE 30ML/HR INCREASED AFTER 15 MINS TO 450ML/HR
     Route: 042
     Dates: start: 20130430
  2. CIPROFLOXACIN (CIPROFLOXACIN) [Concomitant]
     Route: 048
  3. ACICLOVIR (ACICLOVIR) [Concomitant]
     Dosage: DOSAGE WAS OINTMENT 5%PRN, TOPICAL

REACTIONS (5)
  - Back pain [None]
  - Pain in extremity [None]
  - Headache [None]
  - Photophobia [None]
  - Vomiting [None]
